FAERS Safety Report 5209070-4 (Version None)
Quarter: 2007Q1

REPORT INFORMATION
  Report Type: 
  Country: None (occurrence: None)
  Receive Date: 20070116
  Receipt Date: 20070111
  Transmission Date: 20070707
  Serious: Yes (Other)
  Sender: FDA-Public Use
  Company Number: 2007AC00050

PATIENT
  Age: 16 Year
  Sex: Female

DRUGS (1)
  1. QUETIAPINE FUMARATE [Suspect]
     Route: 048

REACTIONS (8)
  - AGITATION [None]
  - CONVULSION [None]
  - GLASGOW COMA SCALE ABNORMAL [None]
  - HYPOTENSION [None]
  - OVERDOSE [None]
  - PUPIL FIXED [None]
  - SINUS TACHYCARDIA [None]
  - VOMITING [None]
